FAERS Safety Report 10049702 (Version 1)
Quarter: 2014Q1

REPORT INFORMATION
  Report Type: Spontaneous
  Country: JP (occurrence: None)
  Receive Date: 20140328
  Receipt Date: 20140328
  Transmission Date: 20141002
  Serious: Yes (Other)
  Sender: FDA-Public Use
  Company Number: 2014041510

PATIENT
  Sex: 0

DRUGS (1)
  1. DESMOPRESSIN [Suspect]
     Indication: DIABETES INSIPIDUS

REACTIONS (2)
  - Exposure during pregnancy [None]
  - Foetal heart rate deceleration abnormality [None]
